FAERS Safety Report 12690816 (Version 5)
Quarter: 2017Q1

REPORT INFORMATION
  Report Type: Spontaneous
  Country: GB (occurrence: GB)
  Receive Date: 20160826
  Receipt Date: 20170113
  Transmission Date: 20170428
  Serious: Yes (Other)
  Sender: FDA-Public Use
  Company Number: GB-RARE DISEASE THERAPEUTICS, INC.-1056786

PATIENT
  Age: 47 Year
  Sex: Male

DRUGS (6)
  1. CYTARABINE. [Suspect]
     Active Substance: CYTARABINE
     Dates: start: 201503
  2. CLOZAPINE. [Suspect]
     Active Substance: CLOZAPINE
     Dates: start: 20160801
  3. CLOZAPINE. [Suspect]
     Active Substance: CLOZAPINE
     Route: 048
     Dates: start: 19981014, end: 20041003
  4. CLOZAPINE. [Suspect]
     Active Substance: CLOZAPINE
     Dates: start: 20041004, end: 20150810
  5. CLOZAPINE. [Suspect]
     Active Substance: CLOZAPINE
     Dates: start: 20150814, end: 20160728
  6. PURIXAN [Suspect]
     Active Substance: MERCAPTOPURINE
     Indication: LANGERHANS^ CELL HISTIOCYTOSIS
     Route: 048

REACTIONS (7)
  - Leukopenia [Recovered/Resolved]
  - Off label use [None]
  - White blood cell count decreased [Recovered/Resolved]
  - Contraindicated product administered [Not Recovered/Not Resolved]
  - Platelet count decreased [Not Recovered/Not Resolved]
  - Langerhans^ cell histiocytosis [Not Recovered/Not Resolved]
  - Neutrophil count decreased [Recovered/Resolved]

NARRATIVE: CASE EVENT DATE: 20141210
